FAERS Safety Report 10075676 (Version 1)
Quarter: 2014Q2

REPORT INFORMATION
  Report Type: Spontaneous
  Country: US (occurrence: None)
  Receive Date: 20140411
  Receipt Date: 20140411
  Transmission Date: 20141212
  Serious: Yes (Hospitalization)
  Sender: FDA-Public Use
  Company Number: None

PATIENT
  Age: 78 Year
  Sex: Female
  Weight: 50.8 kg

DRUGS (1)
  1. ACTEMRA [Suspect]
     Indication: TEMPORAL ARTERITIS

REACTIONS (3)
  - Pneumocystis jirovecii pneumonia [None]
  - Pneumonia cytomegaloviral [None]
  - Clostridium difficile infection [None]
